FAERS Safety Report 4664557-8 (Version None)
Quarter: 2005Q2

REPORT INFORMATION
  Report Type: 
  Country: None (occurrence: None)
  Receive Date: 20050518
  Receipt Date: 20050512
  Transmission Date: 20051028
  Serious: Yes (Death, Hospitalization)
  Sender: FDA-Public Use
  Company Number: US-GLAXOSMITHKLINE-A0558576A

PATIENT
  Age: 41 Year
  Sex: Female

DRUGS (3)
  1. PAXIL [Suspect]
     Indication: ANTIDEPRESSANT THERAPY
     Route: 065
  2. TRAZODONE [Suspect]
     Indication: DRUG USE FOR UNKNOWN INDICATION
     Route: 065
  3. METFORMIN [Suspect]
     Indication: MEDICAL DIET
     Route: 065

REACTIONS (4)
  - COMPLETED SUICIDE [None]
  - HOMICIDAL IDEATION [None]
  - MURDER [None]
  - SUICIDAL IDEATION [None]
